FAERS Safety Report 4839249-2 (Version None)
Quarter: 2005Q4

REPORT INFORMATION
  Report Type: 
  Country: None (occurrence: None)
  Receive Date: 20051129
  Receipt Date: 20041012
  Transmission Date: 20060501
  Serious: No
  Sender: FDA-Public Use
  Company Number: US-GLAXOSMITHKLINE-A0529513A

PATIENT
  Age: 47 Year
  Sex: Male

DRUGS (7)
  1. WELLBUTRIN SR [Suspect]
     Indication: DEPRESSION
     Dosage: 200MG TWICE PER DAY
     Route: 048
     Dates: start: 20040701
  2. PAXIL [Suspect]
     Indication: OBSESSIVE-COMPULSIVE DISORDER
     Dosage: 40MG PER DAY
     Route: 048
     Dates: start: 19990101, end: 20040601
  3. LISINOPRIL [Concomitant]
  4. NEXIUM [Concomitant]
  5. ZOCOR [Concomitant]
  6. ALPRAZOLAM [Concomitant]
  7. HUMALOG [Concomitant]

REACTIONS (4)
  - AGITATION [None]
  - BLOOD GLUCOSE INCREASED [None]
  - DRUG INEFFECTIVE [None]
  - WEIGHT DECREASED [None]
